FAERS Safety Report 4811087-6 (Version None)
Quarter: 2005Q4

REPORT INFORMATION
  Report Type: 
  Country: None (occurrence: None)
  Receive Date: 20051025
  Receipt Date: 20051010
  Transmission Date: 20060501
  Serious: Yes (Death)
  Sender: FDA-Public Use
  Company Number: 2005-02112

PATIENT
  Age: 55 Year
  Sex: Female

DRUGS (7)
  1. VELCADE [Suspect]
     Indication: WALDENSTROM'S MACROGLOBULINAEMIA
     Dosage: SEE IMAGE
     Dates: start: 20040312, end: 20040301
  2. VELCADE [Suspect]
     Indication: WALDENSTROM'S MACROGLOBULINAEMIA
     Dosage: SEE IMAGE
     Dates: start: 20040405, end: 20040819
  3. RITUXIMAB (RITUXIMAB) [Concomitant]
  4. VINCRISTINE [Concomitant]
  5. DOXORUBICIN HCL [Concomitant]
  6. CYCLOPHOSPHAMIDE [Concomitant]
  7. PREDNISONE [Concomitant]

REACTIONS (15)
  - ASTHENIA [None]
  - CHILLS [None]
  - CONJUNCTIVAL HYPERAEMIA [None]
  - CRYOGLOBULINAEMIA [None]
  - DISEASE PROGRESSION [None]
  - ENDOCARDITIS BACTERIAL [None]
  - MYALGIA [None]
  - NEUTROPENIA [None]
  - OEDEMA [None]
  - PYREXIA [None]
  - RASH [None]
  - SKIN NODULE [None]
  - STAPHYLOCOCCAL INFECTION [None]
  - SYNCOPE [None]
  - VASCULITIS [None]
